FAERS Safety Report 26054681 (Version 1)
Quarter: 2025Q4

REPORT INFORMATION
  Report Type: Spontaneous
  Country: US (occurrence: US)
  Receive Date: 20251117
  Receipt Date: 20251117
  Transmission Date: 20260117
  Serious: Yes (Other)
  Sender: ReacX Pharmaceuticals
  Company Number: US-REACX PHARMACEUTICALS-2025RCX00082

PATIENT
  Age: 45 Year
  Sex: Female

DRUGS (3)
  1. BUPRENORPHINE\NALOXONE [Suspect]
     Active Substance: BUPRENORPHINE\NALOXONE
     Indication: Drug use disorder
  2. OLANZAPINE [Suspect]
     Active Substance: OLANZAPINE
  3. SAMIDORPHAN [Suspect]
     Active Substance: SAMIDORPHAN

REACTIONS (2)
  - Drug interaction [Recovered/Resolved]
  - Drug withdrawal syndrome [Recovered/Resolved]
